FAERS Safety Report 9327138 (Version 1)
Quarter: 2013Q2

REPORT INFORMATION
  Report Type: Spontaneous
  Country: US (occurrence: US)
  Receive Date: 20130604
  Receipt Date: 20130604
  Transmission Date: 20140414
  Serious: Yes (Other)
  Sender: FDA-Public Use
  Company Number: US-SANOFI-AVENTIS-2013SA055337

PATIENT
  Sex: 0

DRUGS (3)
  1. LOVENOX [Suspect]
  2. SELECTIVE IMMUNOSUPPRESSIVE AGENTS [Suspect]
     Dosage: Q 12 DAYS
     Dates: start: 20130305
  3. ZOFRAN [Suspect]

REACTIONS (3)
  - Premature baby [Unknown]
  - Low birth weight baby [Unknown]
  - Caesarean section [None]
